FAERS Safety Report 9913911 (Version 1)
Quarter: 2014Q1

REPORT INFORMATION
  Report Type: Spontaneous
  Country: US (occurrence: US)
  Receive Date: 20140220
  Receipt Date: 20140220
  Transmission Date: 20141002
  Serious: Yes (Other)
  Sender: FDA-Public Use
  Company Number: US-BAYER-2014-022847

PATIENT
  Age: 84 Year
  Sex: Female
  Weight: 59.86 kg

DRUGS (4)
  1. ALEVE TABLET [Suspect]
     Indication: ARTHRITIS
     Dosage: 2 DF, TID
     Route: 048
     Dates: start: 201401, end: 20140210
  2. ALEVE TABLET [Suspect]
     Indication: ARTHRITIS
     Dosage: 2 DF, BID
     Route: 048
     Dates: start: 201401, end: 20140210
  3. BAYER ASPIRIN REGIMEN ADULT LOW STRENGTH [Suspect]
     Indication: ISCHAEMIC HEART DISEASE PROPHYLAXIS
     Dosage: 1 DF, QD
     Route: 048
     Dates: start: 1993
  4. ONE A DAY WOMEN^S 50+ HEALTHY ADVANTAGE [Concomitant]
     Dosage: UNK

REACTIONS (3)
  - Vaginal haemorrhage [Recovered/Resolved]
  - Extra dose administered [Recovered/Resolved]
  - Incorrect drug administration duration [Recovered/Resolved]
